FAERS Safety Report 9001210 (Version 1)
Quarter: 2013Q1

REPORT INFORMATION
  Report Type: Spontaneous
  Country: JP (occurrence: JP)
  Receive Date: 20130107
  Receipt Date: 20130107
  Transmission Date: 20140127
  Serious: Yes (Other)
  Sender: FDA-Public Use
  Company Number: JP-JNJFOC-20130101508

PATIENT
  Age: 30 Year
  Sex: Male

DRUGS (20)
  1. LEVOFLOXACIN [Suspect]
     Indication: URINARY TRACT INFECTION
     Route: 065
  2. WARFARIN POTASSIUM [Interacting]
     Indication: CONGESTIVE CARDIOMYOPATHY
     Route: 065
  3. ASPIRIN [Concomitant]
     Indication: HYPERURICAEMIA
     Route: 065
  4. ASPIRIN [Concomitant]
     Indication: DIABETES MELLITUS
     Route: 065
  5. DIGOXIN [Concomitant]
     Indication: HYPERURICAEMIA
     Route: 065
  6. DIGOXIN [Concomitant]
     Indication: DIABETES MELLITUS
     Route: 065
  7. PIMOBENDAN [Concomitant]
     Indication: HYPERURICAEMIA
     Route: 065
  8. PIMOBENDAN [Concomitant]
     Indication: DIABETES MELLITUS
     Route: 065
  9. ATENOLOL [Concomitant]
     Indication: HYPERURICAEMIA
     Route: 065
  10. ATENOLOL [Concomitant]
     Indication: DIABETES MELLITUS
     Route: 065
  11. GLIMEPIRIDE [Concomitant]
     Indication: HYPERURICAEMIA
     Route: 065
  12. GLIMEPIRIDE [Concomitant]
     Indication: DIABETES MELLITUS
     Route: 065
  13. VOGLIBOSE [Concomitant]
     Indication: HYPERURICAEMIA
     Route: 065
  14. VOGLIBOSE [Concomitant]
     Indication: DIABETES MELLITUS
     Route: 065
  15. ALLOPURINOL [Concomitant]
     Indication: HYPERURICAEMIA
     Route: 065
  16. ALLOPURINOL [Concomitant]
     Indication: DIABETES MELLITUS
     Route: 065
  17. MILNACIPRAN HYDROCHLORIDE [Concomitant]
     Indication: ASPERGER^S DISORDER
     Route: 065
  18. FLUVOXAMINE MALEATE [Concomitant]
     Indication: ASPERGER^S DISORDER
     Route: 065
  19. RISPERIDONE [Concomitant]
     Indication: ASPERGER^S DISORDER
     Route: 065
  20. SODIUM VALPROATE [Concomitant]
     Indication: ASPERGER^S DISORDER
     Route: 065

REACTIONS (5)
  - Drug interaction [Unknown]
  - Hypovolaemic shock [Unknown]
  - Epistaxis [Recovering/Resolving]
  - Haematuria [Recovering/Resolving]
  - Renal failure acute [Recovered/Resolved]
